FAERS Safety Report 9742612 (Version 1)
Quarter: 2013Q4

REPORT INFORMATION
  Report Type: Spontaneous
  Country: US (occurrence: US)
  Receive Date: 20131210
  Receipt Date: 20131210
  Transmission Date: 20140711
  Serious: No
  Sender: FDA-Public Use
  Company Number: US-GILEAD-2009-0024707

PATIENT
  Sex: Male
  Weight: 83.91 kg

DRUGS (11)
  1. LETAIRIS [Suspect]
     Indication: PULMONARY ARTERIAL HYPERTENSION
     Route: 048
     Dates: start: 20090724
  2. VIAGRA [Concomitant]
  3. FUROSEMIDE [Concomitant]
  4. DEMECLOCYCLINE [Concomitant]
  5. GABAPENTIN [Concomitant]
  6. OMEPRAZOLE [Concomitant]
  7. MORPHINE [Concomitant]
  8. SENNA-C [Concomitant]
  9. FOLIC ACID [Concomitant]
  10. ASPIRIN [Concomitant]
  11. VITAMIN B1 [Concomitant]

REACTIONS (3)
  - Asthenia [Unknown]
  - Fatigue [Unknown]
  - Sinus congestion [Unknown]
